FAERS Safety Report 16438746 (Version 1)
Quarter: 2019Q2

REPORT INFORMATION
  Report Type: Spontaneous
  Country: US (occurrence: US)
  Receive Date: 20190508
  Receipt Date: 20190508
  Transmission Date: 20190711
  Serious: Yes (Hospitalization)
  Sender: FDA-Public Use
  Company Number: None

PATIENT
  Age: 56 Year
  Sex: Female
  Weight: 92.99 kg

DRUGS (7)
  1. ZOFRAN [Concomitant]
     Active Substance: ONDANSETRON HYDROCHLORIDE
  2. XANAX [Concomitant]
     Active Substance: ALPRAZOLAM
  3. ADRIAMYCIN/CYTOXAN [Concomitant]
     Active Substance: CYCLOPHOSPHAMIDE\DOXORUBICIN
  4. NEULASTA [Suspect]
     Active Substance: PEGFILGRASTIM
     Indication: WHITE BLOOD CELL COUNT INCREASED
     Dates: start: 20190213, end: 20190320
  5. STOOL SOFTNERS  SENNA [Concomitant]
  6. LOTREL STEROIDS [Concomitant]
  7. LONTAB [Concomitant]

REACTIONS (6)
  - Abdominal distension [None]
  - Heart rate increased [None]
  - Blood pressure decreased [None]
  - Fatigue [None]
  - White blood cell count increased [None]
  - Asthenia [None]

NARRATIVE: CASE EVENT DATE: 20190309
